FAERS Safety Report 9334628 (Version 2)
Quarter: 2014Q2

REPORT INFORMATION
  Report Type: Spontaneous
  Country: US (occurrence: US)
  Receive Date: 20130606
  Receipt Date: 20140519
  Transmission Date: 20141212
  Serious: No
  Sender: FDA-Public Use
  Company Number: US-AMGEN-USASP2012082461

PATIENT
  Age: 74 Year
  Sex: Female

DRUGS (4)
  1. PROLIA [Suspect]
     Indication: OSTEOPOROSIS POSTMENOPAUSAL
     Dosage: 60 MG, Q6MO
     Route: 065
  2. OMEGA 3 FISH OIL                   /01334101/ [Concomitant]
  3. CALCIUM [Concomitant]
  4. SLEEPING                           /00000402/ [Concomitant]

REACTIONS (12)
  - Psoriasis [Not Recovered/Not Resolved]
  - Skin ulcer [Recovered/Resolved]
  - Impaired healing [Recovered/Resolved]
  - Chills [Unknown]
  - Oropharyngeal pain [Unknown]
  - Influenza [Recovered/Resolved]
  - Malaise [Unknown]
  - Dry throat [Not Recovered/Not Resolved]
  - Upper-airway cough syndrome [Unknown]
  - Seasonal allergy [Unknown]
  - Pharyngeal erythema [Unknown]
  - Gastrooesophageal reflux disease [Not Recovered/Not Resolved]
